FAERS Safety Report 5080440-0 (Version None)
Quarter: 2006Q3

REPORT INFORMATION
  Report Type: 
  Country: None (occurrence: None)
  Receive Date: 20060815
  Receipt Date: 20060726
  Transmission Date: 20061208
  Serious: Yes (Death)
  Sender: FDA-Public Use
  Company Number: JP-SANOFI-SYNTHELABO-A01200606117

PATIENT
  Age: 60 Year
  Sex: Male
  Weight: 51 kg

DRUGS (3)
  1. ISOVORIN [Concomitant]
     Route: 041
     Dates: start: 20060711, end: 20060712
  2. OXALIPLATIN [Suspect]
     Route: 041
     Dates: start: 20060711, end: 20060711
  3. FLUOROURACIL [Suspect]
     Indication: RECTAL CANCER
     Dosage: 625MG/BODY=411.2MG/M2 IN BOLUS THEN 940 MG/BODY=618.4MG/M2 INFUSION
     Route: 042
     Dates: start: 20060711, end: 20060712

REACTIONS (15)
  - BRADYCARDIA [None]
  - CARDIAC ARREST [None]
  - DEPRESSED LEVEL OF CONSCIOUSNESS [None]
  - DIARRHOEA [None]
  - DISSEMINATED INTRAVASCULAR COAGULATION [None]
  - GENERAL PHYSICAL HEALTH DETERIORATION [None]
  - LEUKOPENIA [None]
  - METABOLIC ACIDOSIS [None]
  - NEUTROPENIA [None]
  - PNEUMONIA [None]
  - RENAL FAILURE [None]
  - RESPIRATORY FAILURE [None]
  - SEPSIS [None]
  - SEPTIC SHOCK [None]
  - URINARY TRACT INFECTION [None]
